FAERS Safety Report 12481644 (Version 2)
Quarter: 2016Q2

REPORT INFORMATION
  Report Type: Spontaneous
  Country: US (occurrence: US)
  Receive Date: 20160620
  Receipt Date: 20160629
  Transmission Date: 20160815
  Serious: No
  Sender: FDA-Public Use
  Company Number: US-PFIZER INC-2016279754

PATIENT
  Age: 54 Year
  Sex: Female
  Weight: 45 kg

DRUGS (1)
  1. LYRICA [Suspect]
     Active Substance: PREGABALIN
     Indication: SCOLIOSIS
     Dosage: 75 MG, 2X/DAY
     Route: 048
     Dates: start: 201603

REACTIONS (6)
  - Tremor [Recovering/Resolving]
  - Therapeutic response unexpected [Not Recovered/Not Resolved]
  - Faeces discoloured [Unknown]
  - Drug effect incomplete [Unknown]
  - Intentional product use issue [Recovering/Resolving]
  - Pre-existing condition improved [Not Recovered/Not Resolved]

NARRATIVE: CASE EVENT DATE: 201603
